FAERS Safety Report 20628465 (Version 1)
Quarter: 2022Q1

REPORT INFORMATION
  Report Type: Spontaneous
  Country: US (occurrence: None)
  Receive Date: 20220323
  Receipt Date: 20220323
  Transmission Date: 20220423
  Serious: No
  Sender: FDA-Public Use
  Company Number: None

PATIENT
  Age: 75 Year
  Sex: Male
  Weight: 68.49 kg

DRUGS (9)
  1. ERLEADA [Suspect]
     Active Substance: APALUTAMIDE
     Indication: Prostate cancer
     Dosage: FREQUENCY : DAILY;?
     Route: 048
     Dates: start: 20211201, end: 20220315
  2. ASPIRIN [Concomitant]
     Active Substance: ASPIRIN
  3. CALCIUM CARBONATE [Concomitant]
     Active Substance: CALCIUM CARBONATE
  4. HYDROCODONE [Concomitant]
     Active Substance: HYDROCODONE
  5. HYDROXYUREA [Concomitant]
     Active Substance: HYDROXYUREA
  6. LUPRON DEPOT (4-MONTH) [Concomitant]
  7. VITAMINS [Concomitant]
     Active Substance: VITAMINS
  8. STOOL SOFTNER/LAXATIVE [Concomitant]
  9. VITAMIN D3 [Concomitant]
     Active Substance: CHOLECALCIFEROL

REACTIONS (1)
  - Prostatic specific antigen increased [None]
